FAERS Safety Report 23442256 (Version 1)
Quarter: 2024Q1

REPORT INFORMATION
  Report Type: Spontaneous
  Country: US (occurrence: None)
  Receive Date: 20240124
  Receipt Date: 20240124
  Transmission Date: 20240409
  Serious: Yes (Hospitalization)
  Sender: FDA-Public Use
  Company Number: None

PATIENT
  Sex: Male

DRUGS (18)
  1. CREON [Suspect]
     Active Substance: PANCRELIPASE AMYLASE\PANCRELIPASE LIPASE\PANCRELIPASE PROTEASE
     Indication: Cystic fibrosis
     Dosage: OTHER QUANTITY : 6000-19000UNIT;?TAKE 2 CAPSULES BY MOUTH WITH MEALS AND TAKE 1 CAPSULE BY MOUTH WIT
     Route: 048
     Dates: start: 20220603
  2. ALBUTEROL NEB 0.083% [Concomitant]
  3. ALBUTEROL [Concomitant]
     Active Substance: ALBUTEROL
  4. CETIRIZINE 1MG/ML SYRUP [Concomitant]
  5. CETIRIZINE 1MG/ML SYRUP (5ML) [Concomitant]
  6. IBUPROFEN CAP 200MG [Concomitant]
  7. POLYETH GLYC 3350 PWD 510GM [Concomitant]
  8. PROAIR HFA AER [Concomitant]
  9. PULMOZYME SOL 1MG/ML [Concomitant]
  10. SENNA 8.8 MG/5ML SYRUP [Concomitant]
  11. SODIUM CHLOR NEB 3% [Concomitant]
  12. TYLENOL CAP 325MG [Concomitant]
  13. VENTOLIN HFA INHALER [Concomitant]
  14. VENTOLIN HFA INHALER [Concomitant]
  15. CREON 6000 UNIT CAP [Concomitant]
  16. CETIRIZINE HYDROCHLORIDE [Concomitant]
     Active Substance: CETIRIZINE HYDROCHLORIDE
  17. POLYETH GLYC3350 PWD [Concomitant]
  18. ALBUTEROL 0.083% INH [Concomitant]

REACTIONS (1)
  - Thermal burn [None]
